FAERS Safety Report 18571530 (Version 3)
Quarter: 2020Q4

REPORT INFORMATION
  Report Type: Report from Study
  Country: US (occurrence: US)
  Receive Date: 20201202
  Receipt Date: 20201210
  Transmission Date: 20210114
  Serious: Yes (Other)
  Sender: FDA-Public Use
  Company Number: US-PFIZER INC-2020463679

PATIENT
  Age: 64 Year
  Sex: Female

DRUGS (27)
  1. VENCLEXTA [Suspect]
     Active Substance: VENETOCLAX
     Dosage: 400 MG, 1X/DAY
     Route: 048
     Dates: start: 20180524
  2. BENADRYL [Suspect]
     Active Substance: DIPHENHYDRAMINE HYDROCHLORIDE
     Dosage: UNK
  3. ADRIAMYCIN [Suspect]
     Active Substance: DOXORUBICIN HYDROCHLORIDE
     Indication: CHRONIC LYMPHOCYTIC LEUKAEMIA
     Dosage: UNK
  4. VENCLEXTA [Suspect]
     Active Substance: VENETOCLAX
     Dosage: 50 MG, 1X/DAY
     Route: 048
     Dates: start: 20180503, end: 20180509
  5. VALACYCLOVIR [Concomitant]
     Active Substance: VALACYCLOVIR HYDROCHLORIDE
     Dosage: 100 MG, 1X/DAY
     Route: 048
  6. VITAMIN B6 [Concomitant]
     Active Substance: PYRIDOXINE HYDROCHLORIDE
     Dosage: 25 MG, 1X/DAY
  7. CYCLOPHOSPHAMIDE. [Suspect]
     Active Substance: CYCLOPHOSPHAMIDE
     Indication: CHRONIC LYMPHOCYTIC LEUKAEMIA
     Dosage: UNK
     Dates: end: 201906
  8. OMEPRAZOLE. [Concomitant]
     Active Substance: OMEPRAZOLE
     Indication: REFLUX GASTRITIS
     Dosage: 40 MG, 1X/DAY
  9. OXYBUTININ ACCORD [Concomitant]
     Active Substance: OXYBUTYNIN
     Indication: HYPERTONIC BLADDER
     Dosage: 10 MG, 1X/DAY
  10. VENCLEXTA [Suspect]
     Active Substance: VENETOCLAX
     Indication: CHRONIC LYMPHOCYTIC LEUKAEMIA TRANSFORMATION
     Dosage: 400 MG, 1X/DAY
     Route: 048
     Dates: start: 20180426, end: 20180502
  11. VENCLEXTA [Suspect]
     Active Substance: VENETOCLAX
     Dosage: UNK
     Route: 048
     Dates: end: 201903
  12. PREDNISONE. [Suspect]
     Active Substance: PREDNISONE
     Indication: CHRONIC LYMPHOCYTIC LEUKAEMIA
     Dosage: UNK
     Dates: end: 201906
  13. ACYCLOVIR [ACICLOVIR] [Concomitant]
     Active Substance: ACYCLOVIR
     Dosage: UNK
  14. VALACYCLOVIR [Concomitant]
     Active Substance: VALACYCLOVIR HYDROCHLORIDE
     Dosage: 1000 MG, DAILY [500MG, 2 IN 1 D]
     Route: 048
  15. ISONIAZID. [Concomitant]
     Active Substance: ISONIAZID
     Dosage: 300 MG, 1X/DAY
  16. RITUXIMAB. [Suspect]
     Active Substance: RITUXIMAB
     Indication: CHRONIC LYMPHOCYTIC LEUKAEMIA
     Dosage: UNK
     Dates: end: 201906
  17. VENCLEXTA [Suspect]
     Active Substance: VENETOCLAX
     Dosage: UNK
     Route: 048
     Dates: start: 2019, end: 20190622
  18. LISINOPRIL. [Concomitant]
     Active Substance: LISINOPRIL
     Indication: HYPERTENSION
     Dosage: 10 MG, 1X/DAY
  19. VINCRISTINE SULFATE. [Suspect]
     Active Substance: VINCRISTINE SULFATE
     Indication: CHRONIC LYMPHOCYTIC LEUKAEMIA
     Dosage: UNK
  20. IMBRUVICA [Suspect]
     Active Substance: IBRUTINIB
     Indication: CHRONIC LYMPHOCYTIC LEUKAEMIA
     Dosage: 420 MG, 1X/DAY
     Route: 048
     Dates: start: 20171125, end: 20180112
  21. VENCLEXTA [Suspect]
     Active Substance: VENETOCLAX
     Dosage: 20 MG, 1X/DAY
     Route: 048
     Dates: start: 20180426, end: 20180502
  22. VENCLEXTA [Suspect]
     Active Substance: VENETOCLAX
     Dosage: 100 MG, 1X/DAY
     Route: 048
     Dates: start: 20180510, end: 20180516
  23. ALLOPURINOL. [Concomitant]
     Active Substance: ALLOPURINOL
     Dosage: 300 MG, 1X/DAY
  24. IMBRUVICA [Suspect]
     Active Substance: IBRUTINIB
     Dosage: 420 MG, 1X/DAY
     Route: 048
     Dates: start: 20171130, end: 20180113
  25. VENCLEXTA [Suspect]
     Active Substance: VENETOCLAX
     Dosage: 200 MG, 1X/DAY
     Route: 048
     Dates: start: 20180517, end: 20180523
  26. GAZYVA [Suspect]
     Active Substance: OBINUTUZUMAB
     Dosage: 100 MG, CYCLIC [FIRST 28 DAYS CYCLE (100 MG,1 IN 1D)]
     Dates: start: 20181120, end: 201812
  27. LEXAPRO [Concomitant]
     Active Substance: ESCITALOPRAM OXALATE
     Dosage: UNK

REACTIONS (48)
  - Arthropod bite [Not Recovered/Not Resolved]
  - Asthenia [Not Recovered/Not Resolved]
  - Headache [Not Recovered/Not Resolved]
  - Arthralgia [Not Recovered/Not Resolved]
  - Neutrophil count decreased [Unknown]
  - Immunodeficiency [Not Recovered/Not Resolved]
  - Muscle spasms [Recovered/Resolved]
  - Lymph gland infection [Recovered/Resolved]
  - Ejection fraction decreased [Not Recovered/Not Resolved]
  - Feeling abnormal [Not Recovered/Not Resolved]
  - Physical deconditioning [Recovered/Resolved]
  - Pruritus [Not Recovered/Not Resolved]
  - Onychomadesis [Not Recovered/Not Resolved]
  - Thrombosis [Recovered/Resolved]
  - White blood cell count decreased [Unknown]
  - Lymphadenopathy [Not Recovered/Not Resolved]
  - Nausea [Not Recovered/Not Resolved]
  - B-cell lymphoma [Not Recovered/Not Resolved]
  - Richter^s syndrome [Not Recovered/Not Resolved]
  - Lymphadenopathy [Recovering/Resolving]
  - Arthralgia [Unknown]
  - Blood potassium decreased [Recovered/Resolved]
  - Diarrhoea [Not Recovered/Not Resolved]
  - Haematocrit decreased [Unknown]
  - Erythema multiforme [Not Recovered/Not Resolved]
  - Hypertension [Not Recovered/Not Resolved]
  - Blood immunoglobulin G decreased [Not Recovered/Not Resolved]
  - Illness [Not Recovered/Not Resolved]
  - Fatigue [Not Recovered/Not Resolved]
  - Axillary mass [Unknown]
  - Depression [Not Recovered/Not Resolved]
  - Epistaxis [Recovered/Resolved]
  - Nasal congestion [Recovered/Resolved]
  - Septic shock [Unknown]
  - Paranoia [Not Recovered/Not Resolved]
  - Alopecia [Recovering/Resolving]
  - Hypophagia [Not Recovered/Not Resolved]
  - Infected bite [Not Recovered/Not Resolved]
  - Localised infection [Unknown]
  - Viral infection [Unknown]
  - Second primary malignancy [Not Recovered/Not Resolved]
  - Cellulitis [Unknown]
  - Neuropathy peripheral [Not Recovered/Not Resolved]
  - Neoplasm progression [Unknown]
  - Urinary tract infection [Recovered/Resolved]
  - Folliculitis [Not Recovered/Not Resolved]
  - Asthenia [Not Recovered/Not Resolved]
  - Nausea [Recovered/Resolved]

NARRATIVE: CASE EVENT DATE: 20171202
